FAERS Safety Report 8933672 (Version 1)
Quarter: 2012Q4

REPORT INFORMATION
  Report Type: 
  Country: US (occurrence: US)
  Receive Date: 20121129
  Receipt Date: 20121129
  Transmission Date: 20130627
  Serious: No
  Sender: FDA-Public Use
  Company Number: PHEH2012US023416

PATIENT
  Age: 65 Year
  Sex: Male

DRUGS (7)
  1. TASIGNA [Suspect]
     Indication: CHRONIC MYELOID LEUKAEMIA
     Dosage: 400 mg, Q2H
     Route: 048
     Dates: start: 20121027, end: 20121126
  2. MELOXICAM [Concomitant]
  3. MULTIVITAMINS [Concomitant]
  4. SIMVASTATIN [Concomitant]
  5. LISINOPRIL [Concomitant]
  6. ALLOPURINOL [Concomitant]
  7. POTASSIUM [Concomitant]

REACTIONS (1)
  - Rash [Recovering/Resolving]
